FAERS Safety Report 23944781 (Version 1)
Quarter: 2024Q2

REPORT INFORMATION
  Report Type: Spontaneous
  Country: TR (occurrence: TR)
  Receive Date: 20240606
  Receipt Date: 20240606
  Transmission Date: 20240716
  Serious: Yes (Hospitalization, Other)
  Sender: FDA-Public Use
  Company Number: TR-AMGEN-TURSP2024104798

PATIENT
  Age: 49 Year
  Sex: Male

DRUGS (1)
  1. ADALIMUMAB [Suspect]
     Active Substance: ADALIMUMAB\ISOPROPYL ALCOHOL
     Indication: Ankylosing spondylitis
     Dosage: 40 MILLIGRAM, Q2WK FOR 6 YEARS
     Route: 065

REACTIONS (3)
  - Mesenteric arterial occlusion [Recovered/Resolved]
  - Lupus-like syndrome [Recovered/Resolved]
  - Mesenteric artery thrombosis [Recovered/Resolved]
